FAERS Safety Report 19664954 (Version 1)
Quarter: 2021Q3

REPORT INFORMATION
  Report Type: Spontaneous
  Country: US (occurrence: US)
  Receive Date: 20210806
  Receipt Date: 20210806
  Transmission Date: 20211014
  Serious: No
  Sender: FDA-Public Use
  Company Number: US-ACCORD-220457

PATIENT
  Age: 55 Year
  Sex: Female

DRUGS (3)
  1. CYTOXAN [Suspect]
     Active Substance: CYCLOPHOSPHAMIDE
     Indication: BREAST CANCER
     Dosage: CYCLE 4
     Route: 042
  2. DOCETAXEL ACCORD [Suspect]
     Active Substance: DOCETAXEL
     Indication: CHEMOTHERAPY
     Route: 042
     Dates: start: 20180501, end: 20180522
  3. NEULASTA [Suspect]
     Active Substance: PEGFILGRASTIM
     Indication: BREAST CANCER

REACTIONS (4)
  - Vitreous floaters [Unknown]
  - Dacryostenosis acquired [Unknown]
  - Dermatochalasis [Unknown]
  - Blepharitis [Unknown]
